FAERS Safety Report 5155475-X (Version None)
Quarter: 2006Q4

REPORT INFORMATION
  Report Type: 
  Country: None (occurrence: None)
  Receive Date: 20061114
  Receipt Date: 20061012
  Transmission Date: 20070319
  Serious: Yes (Hospitalization)
  Sender: FDA-Public Use
  Company Number: 2006BH014450

PATIENT
  Age: 22 Year
  Sex: Male

DRUGS (2)
  1. ANTICOAGULANT 4% SODIUM CITRATE DEVICE [Suspect]
     Indication: PLASMAPHERESIS
     Dosage: UNK; UNK
  2. SALINE [Concomitant]

REACTIONS (2)
  - BLOOD URINE PRESENT [None]
  - DYSURIA [None]
